FAERS Safety Report 21676509 (Version 1)
Quarter: 2022Q4

REPORT INFORMATION
  Report Type: Spontaneous
  Country: PT (occurrence: PT)
  Receive Date: 20221202
  Receipt Date: 20221202
  Transmission Date: 20230113
  Serious: Yes (Other)
  Sender: FDA-Public Use
  Company Number: None

PATIENT
  Age: 84 Year
  Sex: Male

DRUGS (12)
  1. AMOXICILLIN\CLAVULANIC ACID [Suspect]
     Active Substance: AMOXICILLIN\CLAVULANIC ACID
     Indication: Ear infection
     Dosage: 875MG + 125MG EVERY 12-12 HOURS 8 DAYS, FREQUENCY TIME : 12 HOURS, DURATION : 8 DAYS,
     Dates: start: 20210621, end: 20210629
  2. SERETIDE [Concomitant]
     Active Substance: FLUTICASONE PROPIONATE\SALMETEROL XINAFOATE
     Indication: Product used for unknown indication
     Dosage: 4 DOSAGE FORMS DAILY; WITH EXPANDING CHAMBER, SERETIDE INHALER, UNIT DOSE :2 DF, SERETIDE 250*, 2PUF
  3. SPIRIVA RESPIMAT [Concomitant]
     Active Substance: TIOTROPIUM BROMIDE
     Indication: Product used for unknown indication
     Dosage: 2 DOSAGE FORMS DAILY; SOLUTION FOR INHALATION BY NEBULIZER, 2PUFFS, 1X/DAY
  4. IBUPROFEN [Concomitant]
     Active Substance: IBUPROFEN
     Indication: Ear infection
     Dosage: 1200 MILLIGRAM DAILY; UNIT DOSE : 600 MG, FREQUENCY TIME : 12 HOURS
  5. ASPIRIN [Concomitant]
     Active Substance: ASPIRIN
     Indication: Product used for unknown indication
     Dosage: 100 MILLIGRAM DAILY; UNIT DOSE : 100 MG, FREQUENCY TIME : 1 DAY, ASA 100MG 0+1+0
  6. OXAZEPAM [Concomitant]
     Active Substance: OXAZEPAM
     Indication: Product used for unknown indication
     Dosage: 15 MILLIGRAM DAILY; UNIT DOSE : 15 MG, FREQUENCY TIME : 1 DAY, OXAZEPAM 15MG 0+ 0+1
  7. ACETAMINOPHEN [Concomitant]
     Active Substance: ACETAMINOPHEN
     Indication: Ear infection
     Dosage: 3 GRAM DAILY; IT HASN^T BEEN A FEW DAYS, UNIT DOSE : 1 GRAM, FREQUENCY TIME : 8 HOURS
     Dates: start: 20210621
  8. ROSUVASTATIN [Concomitant]
     Active Substance: ROSUVASTATIN
     Indication: Product used for unknown indication
     Dosage: 20 MILLIGRAM DAILY; UNIT DOSE : 20 MG, FREQUENCY TIME : 1 DAY ROSUVASTATIN 20MG 0+0+1
  9. PANTOPRAZOLE [Concomitant]
     Active Substance: PANTOPRAZOLE
     Indication: Product used for unknown indication
     Dosage: 40 MILLIGRAM DAILY; UNIT DOSE : 40 MG, PANTOPRAZOLE 40MG 1+0+0
  10. SPIRONOLACTONE [Concomitant]
     Active Substance: SPIRONOLACTONE
     Indication: Product used for unknown indication
     Dosage: 12.5 MILLIGRAM DAILY; SPIRONOLACTONE 12.5MG 0+1+0 , UNIT DOSE : 12.5 MG
  11. BISOPROLOL [Concomitant]
     Active Substance: BISOPROLOL
     Indication: Product used for unknown indication
     Dosage: 2.5 MILLIGRAM DAILY; BISOPROLOL 2.5MG, 1+0+0 , UNIT DOSE : 2.5 MG
  12. DAPAGLIFLOZIN [Concomitant]
     Active Substance: DAPAGLIFLOZIN
     Indication: Product used for unknown indication
     Dosage: 10 MILLIGRAM DAILY; DAPAGLIFLOZIN 10MG, 1 TABLET/DAY

REACTIONS (5)
  - Tongue oedema [Recovered/Resolved]
  - Pruritus genital [Recovered/Resolved]
  - Genital erythema [Recovered/Resolved]
  - Oedema genital [Recovered/Resolved]
  - Lip oedema [Recovered/Resolved]

NARRATIVE: CASE EVENT DATE: 20210629
